FAERS Safety Report 14498438 (Version 1)
Quarter: 2018Q1

REPORT INFORMATION
  Report Type: Spontaneous
  Country: US (occurrence: US)
  Receive Date: 20180207
  Receipt Date: 20180207
  Transmission Date: 20180509
  Serious: Yes (Other)
  Sender: FDA-Public Use
  Company Number: US-SA-2018SA028318

PATIENT
  Sex: Female

DRUGS (2)
  1. LANTUS SOLOSTAR [Suspect]
     Active Substance: INSULIN GLARGINE
     Dosage: DOSE:55 UNIT(S)
     Route: 051
  2. SOLOSTAR [Suspect]
     Active Substance: DEVICE

REACTIONS (3)
  - Renal impairment [Unknown]
  - Myocardial infarction [Unknown]
  - Toe amputation [Unknown]

NARRATIVE: CASE EVENT DATE: 2010
